FAERS Safety Report 16762218 (Version 1)
Quarter: 2019Q3

REPORT INFORMATION
  Report Type: Spontaneous
  Country: GB (occurrence: GB)
  Receive Date: 20190831
  Receipt Date: 20190831
  Transmission Date: 20191005
  Serious: Yes (Other)
  Sender: FDA-Public Use
  Company Number: GB-AUROBINDO-AUR-APL-2019-056968

PATIENT

DRUGS (2)
  1. MONTELUKAST ACCORD [Suspect]
     Active Substance: MONTELUKAST\MONTELUKAST SODIUM
     Indication: ASTHMA
     Dosage: UNK
     Route: 048
     Dates: start: 201303, end: 201407
  2. MONTELUKAST [Suspect]
     Active Substance: MONTELUKAST SODIUM
     Indication: PRODUCT USED FOR UNKNOWN INDICATION
     Dosage: UNK
     Route: 065
     Dates: start: 201802

REACTIONS (6)
  - Behaviour disorder [Unknown]
  - Anxiety [Recovering/Resolving]
  - Hallucination, auditory [Recovering/Resolving]
  - Hallucination [Recovering/Resolving]
  - Poor quality sleep [Recovering/Resolving]
  - Obsessive-compulsive symptom [Recovering/Resolving]

NARRATIVE: CASE EVENT DATE: 2018
